FAERS Safety Report 14367833 (Version 8)
Quarter: 2019Q3

REPORT INFORMATION
  Report Type: Report from Study
  Country: US (occurrence: US)
  Receive Date: 20180109
  Receipt Date: 20190905
  Transmission Date: 20191004
  Serious: Yes (Death, Hospitalization)
  Sender: FDA-Public Use
  Company Number: US-PFIZER INC-2018002140

PATIENT
  Age: 66 Year
  Sex: Male
  Weight: 78 kg

DRUGS (18)
  1. X4P-001 [Suspect]
     Active Substance: INVESTIGATIONAL PRODUCT
     Indication: RENAL CELL CARCINOMA
     Dosage: 400 MG, 1X/DAY
     Route: 048
     Dates: start: 20171013, end: 20171227
  2. HYDROCORTISONE. [Concomitant]
     Active Substance: HYDROCORTISONE
     Indication: DYSPNOEA
     Dosage: 2 ML AS NECESSARY
     Route: 030
     Dates: start: 20160520
  3. DIPHENHYDRAMINE. [Concomitant]
     Active Substance: DIPHENHYDRAMINE
     Indication: DYSPNOEA
     Dosage: UNK
     Route: 048
     Dates: start: 20170516
  4. ESOMEPRAZOLE. [Concomitant]
     Active Substance: ESOMEPRAZOLE MAGNESIUM
     Indication: GASTROOESOPHAGEAL REFLUX DISEASE
     Dosage: 20 MG, PER DAY
     Route: 048
     Dates: start: 20171003
  5. LIPITOR [Concomitant]
     Active Substance: ATORVASTATIN CALCIUM
     Dosage: 5 MG PER DAY
     Route: 048
  6. PRESERVISION [Concomitant]
     Active Substance: MINERALS\VITAMINS
     Indication: VITAMIN SUPPLEMENTATION
     Dosage: TABLET 1 DOSAGE UNIT TWICE
     Route: 048
     Dates: start: 20170221
  7. FLUDROCORTISONE [Concomitant]
     Active Substance: FLUDROCORTISONE
     Indication: ADRENAL INSUFFICIENCY
     Dosage: 0.1 MG PER DAY
     Route: 048
     Dates: start: 20170622
  8. BENZONATATE. [Concomitant]
     Active Substance: BENZONATATE
     Indication: DYSPNOEA
     Dosage: 100 MG, THREE TIMES PER DAY
     Route: 048
     Dates: start: 20170630
  9. ESZOPICLONE. [Concomitant]
     Active Substance: ESZOPICLONE
     Indication: INSOMNIA
     Dosage: 3 MG, PER DAY
     Route: 048
     Dates: start: 20170829
  10. TRAZODONE [Concomitant]
     Active Substance: TRAZODONE HYDROCHLORIDE
     Indication: INSOMNIA
     Dosage: 50 MG, PER DAY
     Route: 048
     Dates: start: 20170920
  11. CLARITIN [Concomitant]
     Active Substance: LORATADINE
     Indication: DYSPNOEA
     Dosage: TABLET 1 PER DAY
     Route: 048
     Dates: start: 20151230
  12. MULTIVITAMIN (16) [Concomitant]
     Active Substance: VITAMINS
     Indication: NUTRITIONAL SUPPLEMENTATION
     Dosage: TABLET 1 PER DAY
     Route: 048
     Dates: start: 20100722
  13. AXITINIB [Suspect]
     Active Substance: AXITINIB
     Indication: RENAL CELL CARCINOMA
     Dosage: 5 MG, 2X/DAY
     Route: 048
     Dates: start: 20171013, end: 20171227
  14. ASPIRIN [ACETYLSALICYLIC ACID] [Concomitant]
     Active Substance: ASPIRIN
     Indication: PROPHYLAXIS
     Dosage: 81 MG PER DAY
     Route: 048
  15. ROBITUSSIN (GUAIFENESIN) [Concomitant]
     Active Substance: GUAIFENESIN
     Indication: DYSPNOEA
     Dosage: 10 ML, LIQUID
     Route: 048
     Dates: start: 20170630
  16. ALBUTEROL [SALBUTAMOL] [Concomitant]
     Active Substance: ALBUTEROL
     Indication: DYSPNOEA
     Dosage: SOLUTION 2 (UNITS UNSPECIFIED) AS NEEDED
     Route: 055
     Dates: start: 20170922
  17. HYDROCORTISONE. [Concomitant]
     Active Substance: HYDROCORTISONE
     Indication: DYSPNOEA
     Dosage: 10 MG, UNK
     Route: 048
     Dates: start: 20170615
  18. NORCO [Concomitant]
     Active Substance: ACETAMINOPHEN\HYDROCODONE BITARTRATE
     Indication: PAIN
     Dosage: 325 MG FOUR TIMES A DAY
     Route: 048
     Dates: start: 20170922

REACTIONS (2)
  - Sepsis [Fatal]
  - Tracheo-oesophageal fistula [Not Recovered/Not Resolved]

NARRATIVE: CASE EVENT DATE: 20171227
